FAERS Safety Report 20062114 (Version 1)
Quarter: 2021Q4

REPORT INFORMATION
  Report Type: Spontaneous
  Country: US (occurrence: US)
  Receive Date: 20211112
  Receipt Date: 20211112
  Transmission Date: 20220303
  Serious: No
  Sender: FDA-Public Use
  Company Number: US-drreddys-SPO/USA/21/0143683

PATIENT
  Age: 16 Year
  Sex: Female

DRUGS (1)
  1. ACCUTANE [Suspect]
     Active Substance: ISOTRETINOIN
     Indication: Product used for unknown indication
     Dosage: RMA ISSUE DATE:30 JULY 2021 10:42:29 AM, 1 SEPTEMBER 2021 12:04:59 PM AND 27 OCTOBER 021 1:08:59 PM

REACTIONS (2)
  - Drug ineffective [Unknown]
  - Product quality issue [Unknown]
